FAERS Safety Report 14334550 (Version 1)
Quarter: 2017Q4

REPORT INFORMATION
  Report Type: Report from Study
  Country: CN (occurrence: CN)
  Receive Date: 20171228
  Receipt Date: 20171228
  Transmission Date: 20180321
  Serious: Yes (Other)
  Sender: FDA-Public Use
  Company Number: CN-ELI_LILLY_AND_COMPANY-CN201711012215

PATIENT
  Age: 23 Year
  Sex: Female

DRUGS (3)
  1. RALTITREXED [Concomitant]
     Active Substance: RALTITREXED
     Indication: COLON CANCER
  2. CETUXIMAB. [Suspect]
     Active Substance: CETUXIMAB
     Indication: COLON CANCER
     Dosage: 500 MG/ML, ONCE IN TWO WEEKS
     Route: 042
     Dates: start: 20170727
  3. OXALIPLATIN. [Concomitant]
     Active Substance: OXALIPLATIN
     Indication: COLON CANCER

REACTIONS (3)
  - White blood cell count decreased [Recovering/Resolving]
  - Decreased appetite [Unknown]
  - Off label use [Unknown]

NARRATIVE: CASE EVENT DATE: 2017
